FAERS Safety Report 7603028-3 (Version None)
Quarter: 2011Q3

REPORT INFORMATION
  Report Type: 
  Country: None (occurrence: None)
  Receive Date: 20110711
  Receipt Date: 20110711
  Transmission Date: 20111222
  Serious: Yes (Life-Threatening)
  Sender: FDA-Public Use
  Company Number: None

PATIENT
  Age: 76 Year
  Sex: Female

DRUGS (1)
  1. PRADAXA [Suspect]
     Indication: ATRIAL FIBRILLATION
     Dosage: 150MG TWICE A DAY PO
     Route: 048
     Dates: start: 20110623, end: 20110626

REACTIONS (9)
  - HAEMORRHAGE [None]
  - INJECTION SITE HAEMORRHAGE [None]
  - HAEMATOCHEZIA [None]
  - INTERNATIONAL NORMALISED RATIO INCREASED [None]
  - HAEMOGLOBIN DECREASED [None]
  - DYSPEPSIA [None]
  - HYPOTENSION [None]
  - ABDOMINAL PAIN UPPER [None]
  - GINGIVAL BLEEDING [None]
